FAERS Safety Report 19367494 (Version 1)
Quarter: 2021Q2

REPORT INFORMATION
  Report Type: Spontaneous
  Country: US (occurrence: US)
  Receive Date: 20210602
  Receipt Date: 20210602
  Transmission Date: 20210717
  Serious: No
  Sender: FDA-Public Use
  Company Number: US-ROCHE-2824378

PATIENT
  Sex: Female
  Weight: 63.5 kg

DRUGS (1)
  1. EVRYSDI [Suspect]
     Active Substance: RISDIPLAM
     Indication: SPINAL MUSCULAR ATROPHY
     Dosage: STRENGTH : 0.75 MG/ML
     Route: 048
     Dates: start: 20201027

REACTIONS (1)
  - Rash [Recovered/Resolved]
